FAERS Safety Report 9904597 (Version 1)
Quarter: 2014Q1

REPORT INFORMATION
  Report Type: Spontaneous
  Country: US (occurrence: US)
  Receive Date: 20140218
  Receipt Date: 20140218
  Transmission Date: 20141002
  Serious: No
  Sender: FDA-Public Use
  Company Number: US-BAYER-2014-024172

PATIENT
  Age: 32 Year
  Sex: Female

DRUGS (1)
  1. SKYLA [Suspect]
     Dosage: 12 MCG/24HR, CONT
     Route: 015
     Dates: start: 20130514

REACTIONS (1)
  - Arthralgia [None]
